FAERS Safety Report 8622794-1 (Version None)
Quarter: 2012Q3

REPORT INFORMATION
  Report Type: 
  Country: None (occurrence: None)
  Receive Date: 20120827
  Receipt Date: 20120817
  Transmission Date: 20120928
  Serious: Yes (Other)
  Sender: FDA-Public Use
  Company Number: US-BAYER-2012-086128

PATIENT
  Sex: Female

DRUGS (1)
  1. MIRENA [Suspect]
     Dosage: UNK
     Dates: start: 20120816

REACTIONS (6)
  - VAGINAL HAEMORRHAGE [None]
  - ABDOMINAL PAIN LOWER [None]
  - ABDOMINAL PAIN [None]
  - NAUSEA [None]
  - PYREXIA [None]
  - MEDICAL DEVICE COMPLICATION [None]
